FAERS Safety Report 7467389-0 (Version None)
Quarter: 2011Q2

REPORT INFORMATION
  Report Type: 
  Country: None (occurrence: None)
  Receive Date: 20110509
  Receipt Date: 20101217
  Transmission Date: 20111010
  Serious: No
  Sender: FDA-Public Use
  Company Number: US-ALEXION-A201001634

PATIENT
  Sex: Female

DRUGS (9)
  1. SOLIRIS [Suspect]
     Indication: PAROXYSMAL NOCTURNAL HAEMOGLOBINURIA
     Dosage: 600 MG, QW
     Route: 042
     Dates: start: 20091202
  2. SOLIRIS [Suspect]
     Dosage: 900 MG, Q2W
     Route: 042
     Dates: start: 20091230, end: 20100903
  3. CELEBREX [Concomitant]
     Indication: ARTHRITIS
     Dosage: UNK
  4. OXALIPLATIN [Concomitant]
     Indication: NEOPLASM MALIGNANT
     Dosage: 1 CYCLE
     Dates: start: 20100927, end: 20100927
  5. CELEXA [Concomitant]
     Indication: INSOMNIA
     Dosage: 20 MG, UNK
  6. IRINOTECAN HYDROCHLORIDE [Concomitant]
     Indication: NEOPLASM MALIGNANT
     Dosage: UNK
     Route: 042
     Dates: start: 20101207, end: 20101201
  7. VICODIN [Concomitant]
     Indication: PAIN
     Dosage: 5/500, PRN
  8. METOPROLOL TARTRATE [Concomitant]
     Indication: HYPERTENSION
     Dosage: 25 MG, BID
  9. SOLIRIS [Suspect]
     Dosage: 900 MG, Q2W
     Route: 042
     Dates: start: 20101207

REACTIONS (4)
  - DECREASED APPETITE [None]
  - ABDOMINAL PAIN [None]
  - FEELING ABNORMAL [None]
  - DIARRHOEA [None]
